FAERS Safety Report 5356232-1 (Version None)
Quarter: 2007Q2

REPORT INFORMATION
  Report Type: 
  Country: None (occurrence: None)
  Receive Date: 20070612
  Receipt Date: 20070531
  Transmission Date: 20071010
  Serious: Yes (Hospitalization, Other)
  Sender: FDA-Public Use
  Company Number: US-PFIZER INC-2007045225

PATIENT
  Sex: Male

DRUGS (4)
  1. CELEBREX [Suspect]
     Indication: OEDEMA PERIPHERAL
  2. CELEBREX [Suspect]
     Indication: LOCAL SWELLING
  3. CELEBREX [Suspect]
     Indication: ARTHRITIS
  4. BEXTRA [Suspect]

REACTIONS (4)
  - CHEST PAIN [None]
  - HYPERTENSION [None]
  - OEDEMA PERIPHERAL [None]
  - THROMBOSIS [None]
